FAERS Safety Report 5903603-8 (Version None)
Quarter: 2008Q3

REPORT INFORMATION
  Report Type: 
  Country: None (occurrence: None)
  Receive Date: 20080919
  Receipt Date: 20080812
  Transmission Date: 20090109
  Serious: No
  Sender: FDA-Public Use
  Company Number: US-WYE-H05573508

PATIENT
  Age: 65 Year
  Sex: Female
  Weight: 108.96 kg

DRUGS (10)
  1. PRISTIQ [Suspect]
     Indication: DEPRESSION
     Dosage: 50 MG 1X PER 1 DAY, ORAL
     Route: 048
     Dates: start: 20080806
  2. IMDUR [Concomitant]
  3. ATENOLOL [Concomitant]
  4. ZYRTEC [Concomitant]
  5. SEROQUEL [Concomitant]
  6. XANAX [Concomitant]
  7. NORVASC [Concomitant]
  8. MICARDIS [Concomitant]
  9. HYDROCHLOROTHIAZIDE [Concomitant]
  10. SINGULAIR [Concomitant]

REACTIONS (4)
  - CRYING [None]
  - DYSGEUSIA [None]
  - INSOMNIA [None]
  - PAROSMIA [None]
